FAERS Safety Report 8964534 (Version 1)
Quarter: 2012Q4

REPORT INFORMATION
  Report Type: 
  Country: IL (occurrence: IL)
  Receive Date: 20121214
  Receipt Date: 20121214
  Transmission Date: 20130627
  Serious: Yes (Hospitalization, Other)
  Sender: FDA-Public Use
  Company Number: IL-ELI_LILLY_AND_COMPANY-IL201212001555

PATIENT
  Age: 27 Year
  Sex: Male

DRUGS (2)
  1. OLANZAPINE [Suspect]
     Indication: SCHIZOPHRENIA
     Dosage: 405 mg, unknown
     Route: 030
     Dates: start: 20121118
  2. ZYPREXA [Suspect]
     Indication: SCHIZOPHRENIA
     Dosage: UNK UNK, unknown

REACTIONS (3)
  - Psychotic disorder [Unknown]
  - Psychotic disorder [Not Recovered/Not Resolved]
  - Drug ineffective [Unknown]
